FAERS Safety Report 6540165-9 (Version None)
Quarter: 2010Q1

REPORT INFORMATION
  Report Type: 
  Country: None (occurrence: None)
  Receive Date: 20100115
  Receipt Date: 20100108
  Transmission Date: 20100710
  Serious: Yes (Other)
  Sender: FDA-Public Use
  Company Number: US-ASTRAZENECA-2009SE15140

PATIENT
  Age: 39 Year
  Sex: Female

DRUGS (6)
  1. SEROQUEL [Suspect]
     Indication: MOOD SWINGS
     Route: 048
     Dates: start: 20020101, end: 20070101
  2. PARNATE [Concomitant]
  3. KLONOPIN [Concomitant]
  4. PANACID [Concomitant]
  5. DALMANE [Concomitant]
  6. SENOKOT [Concomitant]

REACTIONS (3)
  - CATARACT [None]
  - EYE DISORDER [None]
  - WEIGHT INCREASED [None]
